FAERS Safety Report 18723852 (Version 1)
Quarter: 2021Q1

REPORT INFORMATION
  Report Type: Spontaneous
  Country: US (occurrence: US)
  Receive Date: 20210111
  Receipt Date: 20210111
  Transmission Date: 20210419
  Serious: Yes (Hospitalization, Other)
  Sender: FDA-Public Use
  Company Number: US-GLAXOSMITHKLINE-US2020GSK259436

PATIENT
  Age: 51 Year
  Sex: Male

DRUGS (2)
  1. VALACICLOVIR [Suspect]
     Active Substance: VALACYCLOVIR HYDROCHLORIDE
     Indication: HERPES ZOSTER
     Dosage: 1 G, TID
  2. ACICLOVIR [Suspect]
     Active Substance: ACYCLOVIR
     Indication: HERPES ZOSTER
     Dosage: 800 MG, FIVE TIMES DAILY

REACTIONS (6)
  - Hallucination, visual [Unknown]
  - Condition aggravated [Unknown]
  - Incorrect dose administered [Unknown]
  - Confusional state [Unknown]
  - Neurotoxicity [Unknown]
  - Drug level above therapeutic [Recovered/Resolved]
